FAERS Safety Report 6126981-6 (Version None)
Quarter: 2009Q1

REPORT INFORMATION
  Report Type: 
  Country: None (occurrence: None)
  Receive Date: 20090320
  Receipt Date: 20090311
  Transmission Date: 20090719
  Serious: Yes (Hospitalization, Other)
  Sender: FDA-Public Use
  Company Number: US-MERCK-0808USA01435

PATIENT
  Age: 48 Year
  Sex: Female

DRUGS (7)
  1. FOSAMAX [Suspect]
     Indication: OSTEOPOROSIS
     Route: 048
     Dates: start: 19980101, end: 20060601
  2. FOSAMAX [Suspect]
     Route: 048
     Dates: start: 20050601
  3. FOSAMAX PLUS D [Suspect]
     Indication: OSTEOPOROSIS
     Route: 048
     Dates: start: 20060619, end: 20060101
  4. TENORMIN [Concomitant]
     Route: 065
  5. NEXIUM [Concomitant]
     Route: 065
  6. NEURONTIN [Concomitant]
     Route: 065
  7. BONIVA [Suspect]
     Indication: OSTEOPOROSIS
     Route: 065
     Dates: start: 20070601, end: 20070901

REACTIONS (6)
  - BENIGN BONE NEOPLASM [None]
  - FOOT FRACTURE [None]
  - IMPAIRED HEALING [None]
  - OSTEOMYELITIS [None]
  - OSTEONECROSIS [None]
  - UTERINE DISORDER [None]
